FAERS Safety Report 7354745-4 (Version None)
Quarter: 2011Q1

REPORT INFORMATION
  Report Type: 
  Country: None (occurrence: None)
  Receive Date: 20110316
  Receipt Date: 20110303
  Transmission Date: 20110831
  Serious: Yes (Life-Threatening)
  Sender: FDA-Public Use
  Company Number: JP-ACTELION-A-CH2010-39742

PATIENT
  Sex: Female
  Weight: 34 kg

DRUGS (13)
  1. BERAPROST SODIUM [Concomitant]
  2. TRACLEER [Suspect]
     Indication: PULMONARY ARTERIAL HYPERTENSION
     Dosage: 31.25 MG, BID
     Route: 048
     Dates: start: 20100906, end: 20100913
  3. PIPERACILLIN AND TAZOBACTAM [Concomitant]
  4. CEFOTIAM HYDROCHLORIDE [Concomitant]
  5. TRACLEER [Suspect]
     Dosage: 62.5 MG, QD
     Route: 048
     Dates: start: 20100930, end: 20101002
  6. MAGNESIUM OXIDE [Concomitant]
  7. DOBUTAMINE HCL [Concomitant]
  8. TORASEMIDE [Suspect]
     Dosage: UNK
     Dates: start: 20100907, end: 20100913
  9. REBAMIPIDE [Concomitant]
  10. CARBOCISTEINE [Concomitant]
  11. EPOPROSTENOL SODIUM [Concomitant]
     Dosage: UNK
     Dates: start: 20100906
  12. DOPAMINE [Concomitant]
  13. OXYGEN [Concomitant]

REACTIONS (5)
  - VENTRICULAR EXTRASYSTOLES [None]
  - NERVOUSNESS [None]
  - TORSADE DE POINTES [None]
  - VENTRICULAR TACHYCARDIA [None]
  - ELECTROCARDIOGRAM QT PROLONGED [None]
